FAERS Safety Report 16457489 (Version 1)
Quarter: 2019Q2

REPORT INFORMATION
  Report Type: Spontaneous
  Country: FR (occurrence: FR)
  Receive Date: 20190620
  Receipt Date: 20190620
  Transmission Date: 20190711
  Serious: Yes (Other)
  Sender: FDA-Public Use
  Company Number: FR-PFIZER INC-2019259435

PATIENT
  Age: 61 Year
  Weight: 66.5 kg

DRUGS (3)
  1. MILTEFOSINE [Concomitant]
     Active Substance: MILTEFOSINE
     Indication: SCEDOSPORIUM INFECTION
     Dosage: 50 MG, UNK (EVERY 8 HOURS)
  2. VORICONAZOLE. [Suspect]
     Active Substance: VORICONAZOLE
     Indication: SCEDOSPORIUM INFECTION
     Dosage: 200 MG, 2X/DAY (FOLLOWING LOADING DOSE OF 6 MG/KG /GRADUALLY INCREASE BY 100MG UNTIL ACHIEVING 500MG
     Route: 048
  3. TERBINAFINE. [Concomitant]
     Active Substance: TERBINAFINE
     Indication: SCEDOSPORIUM INFECTION
     Dosage: UNK

REACTIONS (2)
  - Drug level below therapeutic [Recovering/Resolving]
  - Drug ineffective [Recovering/Resolving]
